FAERS Safety Report 4906428-5 (Version None)
Quarter: 2006Q1

REPORT INFORMATION
  Report Type: 
  Country: None (occurrence: None)
  Receive Date: 20060206
  Receipt Date: 20060125
  Transmission Date: 20060701
  Serious: Yes (Death)
  Sender: FDA-Public Use
  Company Number: 221459

PATIENT
  Age: 16 Year
  Sex: Male

DRUGS (9)
  1. NUTROPIN AQ [Suspect]
     Indication: RENAL FAILURE CHRONIC
     Dosage: 2.3 MG, 6/WEEK, SUBCUTANEOUS
     Route: 058
     Dates: start: 20031001, end: 20050401
  2. AZATHIOPRINE [Concomitant]
  3. PREDNISONE [Concomitant]
  4. FK-506 (TACROLIMUS) [Concomitant]
  5. NITIDINE [Concomitant]
  6. SEROQUEL [Concomitant]
  7. ALBUTEROL (ALBUTEROL/ALBUTEROL SULFATE) [Concomitant]
  8. CAPTOPRIL [Concomitant]
  9. CLONIDINE [Concomitant]

REACTIONS (1)
  - LYMPHOPROLIFERATIVE DISORDER [None]
